FAERS Safety Report 6601334-2 (Version None)
Quarter: 2010Q1

REPORT INFORMATION
  Report Type: 
  Country: None (occurrence: None)
  Receive Date: 20100225
  Receipt Date: 20100222
  Transmission Date: 20100710
  Serious: Yes (Hospitalization)
  Sender: FDA-Public Use
  Company Number: KR-BAYER-201016678GPV

PATIENT
  Age: 68 Year
  Sex: Male
  Weight: 60 kg

DRUGS (13)
  1. SORAFENIB [Suspect]
     Indication: HEPATIC NEOPLASM MALIGNANT
     Dosage: TOTAL DAILY DOSE: 400 MG
     Route: 048
     Dates: start: 20100218, end: 20100220
  2. PLACEBO [Suspect]
     Indication: HEPATIC NEOPLASM MALIGNANT
     Dosage: TOTAL DAILY DOSE: 100 MG
     Route: 048
     Dates: start: 20100218, end: 20100220
  3. CHLORPHENIRAMINE MALEATE [Concomitant]
     Route: 042
     Dates: start: 20100222, end: 20100222
  4. CHLORPHENIRAMINE MALEATE [Concomitant]
     Route: 042
     Dates: start: 20100221, end: 20100221
  5. CIPROFLOXACIN [Concomitant]
     Route: 042
     Dates: start: 20100221, end: 20100221
  6. CIPROFLOXACIN [Concomitant]
     Route: 042
     Dates: start: 20100222, end: 20100222
  7. TAMIPOOL [Concomitant]
     Indication: DECREASED APPETITE
     Dosage: 3 VIAL
     Route: 042
     Dates: start: 20100222, end: 20100222
  8. TAMIPOOL [Concomitant]
     Dosage: 2 VIAL
     Route: 042
     Dates: start: 20100220, end: 20100221
  9. PANTOPRAZOLE [Concomitant]
     Route: 042
     Dates: start: 20100221, end: 20100221
  10. PANTOPRAZOLE [Concomitant]
     Route: 042
     Dates: start: 20100222, end: 20100222
  11. PANTOPRAZOLE [Concomitant]
     Route: 042
     Dates: start: 20100220, end: 20100220
  12. SOMATOSTATIN [Concomitant]
     Indication: HAEMORRHAGE
     Route: 042
     Dates: start: 20100222, end: 20100222
  13. SOMATOSTATIN [Concomitant]
     Route: 042
     Dates: start: 20100220, end: 20100221

REACTIONS (1)
  - ENCEPHALOPATHY [None]
